FAERS Safety Report 11786728 (Version 4)
Quarter: 2016Q1

REPORT INFORMATION
  Report Type: Report from Study
  Country: US (occurrence: US)
  Receive Date: 20151130
  Receipt Date: 20160224
  Transmission Date: 20160525
  Serious: Yes (Other)
  Sender: FDA-Public Use
  Company Number: US-BAYER-2015-471107

PATIENT
  Age: 79 Year
  Sex: Male

DRUGS (3)
  1. STIVARGA [Suspect]
     Active Substance: REGORAFENIB
     Indication: APPENDIX CANCER
     Dosage: DAILY DOSE 80 MG
     Route: 048
     Dates: start: 20151108
  2. STIVARGA [Suspect]
     Active Substance: REGORAFENIB
     Indication: APPENDIX CANCER
     Dosage: 40 MG, QD
     Route: 048
     Dates: start: 20151206
  3. STIVARGA [Suspect]
     Active Substance: REGORAFENIB
     Indication: COLON CANCER
     Dosage: 160 MG, QD
     Route: 048
     Dates: start: 201511

REACTIONS (17)
  - Pain in extremity [None]
  - Erythema [None]
  - Fatigue [None]
  - Blister [None]
  - Feeling abnormal [None]
  - Adverse drug reaction [None]
  - Nasopharyngitis [None]
  - Abasia [None]
  - Blood pressure increased [None]
  - Diarrhoea [None]
  - Hypertension [None]
  - Palmar-plantar erythrodysaesthesia syndrome [None]
  - Peripheral swelling [None]
  - Dysphonia [None]
  - Decreased appetite [None]
  - Constipation [None]
  - Blister [Not Recovered/Not Resolved]

NARRATIVE: CASE EVENT DATE: 201511
